FAERS Safety Report 19511575 (Version 1)
Quarter: 2021Q3

REPORT INFORMATION
  Report Type: Spontaneous
  Country: US (occurrence: US)
  Receive Date: 20210709
  Receipt Date: 20210709
  Transmission Date: 20211014
  Serious: No
  Sender: FDA-Public Use
  Company Number: None

PATIENT
  Age: 49 Year
  Sex: Female
  Weight: 78.9 kg

DRUGS (13)
  1. CYCLOBENZAPRIN [Concomitant]
     Active Substance: CYCLOBENZAPRINE
  2. ZYRTEC [Concomitant]
     Active Substance: CETIRIZINE HYDROCHLORIDE
  3. NEOMYCIN?BACITRACIN?POLYMYXIN [Concomitant]
  4. FLONASE [Concomitant]
     Active Substance: FLUTICASONE PROPIONATE
  5. ONDANSETRON HCL [Concomitant]
     Active Substance: ONDANSETRON HYDROCHLORIDE
  6. MAPAP [Concomitant]
     Active Substance: ACETAMINOPHEN
  7. SUDOGEST PE [Concomitant]
     Active Substance: PHENYLEPHRINE HYDROCHLORIDE
  8. ALBUTEROL SULFATE HFA [Concomitant]
     Active Substance: ALBUTEROL SULFATE
  9. IBUPROFEN. [Concomitant]
     Active Substance: IBUPROFEN
  10. MONTELUKAST SODIUM. [Concomitant]
     Active Substance: MONTELUKAST SODIUM
  11. EVEROLIMUS 0.5MG [Suspect]
     Active Substance: EVEROLIMUS
     Indication: CARCINOID SYNDROME
     Route: 048
     Dates: start: 20210630
  12. BANOPHEN [Concomitant]
     Active Substance: DIPHENHYDRAMINE HYDROCHLORIDE
  13. EVEROLIMUS. [Concomitant]
     Active Substance: EVEROLIMUS

REACTIONS (1)
  - Nausea [None]

NARRATIVE: CASE EVENT DATE: 20210630
